FAERS Safety Report 16610306 (Version 1)
Quarter: 2019Q3

REPORT INFORMATION
  Report Type: Spontaneous
  Country: US (occurrence: US)
  Receive Date: 20190721
  Receipt Date: 20190721
  Transmission Date: 20191004
  Serious: Yes (Life-Threatening, Hospitalization, Disabling)
  Sender: FDA-Public Use
  Company Number: None

PATIENT
  Age: 25 Year
  Sex: Female
  Weight: 52.16 kg

DRUGS (4)
  1. NEXPLANON [Suspect]
     Active Substance: ETONOGESTREL
  2. TRUBIOTICS [Concomitant]
     Active Substance: PROBIOTICS NOS
  3. PROZAC [Concomitant]
     Active Substance: FLUOXETINE HYDROCHLORIDE
  4. ATARAX [Concomitant]
     Active Substance: HYDROXYZINE HYDROCHLORIDE

REACTIONS (10)
  - Product complaint [None]
  - Pain [None]
  - Dermoid cyst [None]
  - Job dissatisfaction [None]
  - Hypersensitivity [None]
  - Hypersomnia [None]
  - Apparent death [None]
  - Malaise [None]
  - Depression [None]
  - Quality of life decreased [None]

NARRATIVE: CASE EVENT DATE: 20180426
